FAERS Safety Report 5574704-1 (Version None)
Quarter: 2007Q4

REPORT INFORMATION
  Report Type: 
  Country: None (occurrence: None)
  Receive Date: 20071221
  Receipt Date: 20071221
  Transmission Date: 20080405
  Serious: Yes (Life-Threatening, Other)
  Sender: FDA-Public Use
  Company Number: None

PATIENT
  Age: 52 Year
  Sex: Male
  Weight: 92.9874 kg

DRUGS (5)
  1. MEVACOR [Suspect]
  2. LIPITOR [Suspect]
  3. ZETIA [Suspect]
  4. ZOCOR [Suspect]
  5. CRESTOR [Suspect]

REACTIONS (4)
  - AMYOTROPHIC LATERAL SCLEROSIS [None]
  - LIVER FUNCTION TEST ABNORMAL [None]
  - MUSCLE SPASMS [None]
  - MYALGIA [None]
